FAERS Safety Report 18642909 (Version 1)
Quarter: 2020Q4

REPORT INFORMATION
  Report Type: Spontaneous
  Country: US (occurrence: US)
  Receive Date: 20201218
  Receipt Date: 20201218
  Transmission Date: 20210114
  Serious: No
  Sender: FDA-Public Use
  Company Number: None

PATIENT
  Sex: Female

DRUGS (1)
  1. IBRANCE [Suspect]
     Active Substance: PALBOCICLIB
     Indication: MIXED HEPATOCELLULAR CHOLANGIOCARCINOMA
     Route: 048
     Dates: start: 20201214

REACTIONS (1)
  - Therapeutic product effect decreased [None]
